FAERS Safety Report 8955399 (Version 1)
Quarter: 2012Q4

REPORT INFORMATION
  Report Type: 
  Country: US (occurrence: US)
  Receive Date: 20121210
  Receipt Date: 20121210
  Transmission Date: 20130627
  Serious: No
  Sender: FDA-Public Use
  Company Number: US-PFIZER INC-2012308378

PATIENT
  Age: 68 Year
  Sex: Female
  Weight: 86.17 kg

DRUGS (4)
  1. ADVIL [Suspect]
     Indication: ARTHRITIS
     Dosage: UNK
  2. ADVIL [Suspect]
     Indication: BURSITIS
  3. ADVIL [Suspect]
     Indication: MIGRAINE HEADACHE
  4. ULTRAM [Concomitant]
     Indication: ARTHRITIS
     Dosage: UNK, as needed

REACTIONS (1)
  - Drug ineffective [Unknown]
